FAERS Safety Report 14354958 (Version 2)
Quarter: 2018Q1

REPORT INFORMATION
  Report Type: Spontaneous
  Country: CH (occurrence: CH)
  Receive Date: 20180105
  Receipt Date: 20180112
  Transmission Date: 20180509
  Serious: Yes (Death, Other)
  Sender: FDA-Public Use
  Company Number: CH-ASTRAZENECA-2018SE01710

PATIENT
  Age: 1066 Month
  Sex: Female

DRUGS (21)
  1. MORPHINE HYDROCHLORIDE [Suspect]
     Active Substance: MORPHINE HYDROCHLORIDE
     Indication: PAIN
     Dosage: 2.5 MG
     Route: 048
     Dates: start: 20170929, end: 20170929
  2. MYSOLINE [Concomitant]
     Active Substance: PRIMIDONE
     Dates: end: 20171010
  3. OXYNORM [Suspect]
     Active Substance: OXYCODONE HYDROCHLORIDE
     Indication: PAIN
     Route: 041
     Dates: start: 20170930, end: 20171010
  4. DANCOR [Suspect]
     Active Substance: NICORANDIL
     Route: 048
     Dates: end: 20171010
  5. RIOPAN [Concomitant]
     Active Substance: MAGALDRATE
     Dates: end: 20171010
  6. LAXOBERON [Concomitant]
     Active Substance: SODIUM PICOSULFATE
     Dates: start: 20170929, end: 20171010
  7. CLEXANE [Concomitant]
     Active Substance: ENOXAPARIN SODIUM
     Route: 058
     Dates: start: 20170928, end: 20171006
  8. URISPAS [Concomitant]
     Active Substance: FLAVOXATE HYDROCHLORIDE
     Dates: end: 20171010
  9. AUGMENTIN [Concomitant]
     Active Substance: AMOXICILLIN\CLAVULANATE POTASSIUM
     Dates: start: 20171011
  10. QUETIAPINE. [Suspect]
     Active Substance: QUETIAPINE
     Indication: ANXIETY
     Route: 048
     Dates: start: 20170929, end: 20171011
  11. PRAVASTATIN. [Concomitant]
     Active Substance: PRAVASTATIN
     Dates: end: 20171010
  12. DAFALGAN [Concomitant]
     Active Substance: ACETAMINOPHEN
     Dates: start: 20170928, end: 20171010
  13. ASPIRIN CARDIO [Suspect]
     Active Substance: ASPIRIN
     Indication: PROPHYLAXIS
     Route: 048
     Dates: end: 20171010
  14. VI-DE 3 [Concomitant]
     Active Substance: CHOLECALCIFEROL
     Dates: start: 20170928, end: 20171010
  15. HALDOL [Concomitant]
     Active Substance: HALOPERIDOL
     Dates: start: 20170928, end: 20171001
  16. TRAMADOL. [Concomitant]
     Active Substance: TRAMADOL
     Dates: end: 201710
  17. SYMFONA [Concomitant]
     Active Substance: GINKGO
     Dates: end: 20170928
  18. OXYCODONE [Concomitant]
     Active Substance: OXYCODONE
     Dates: start: 20171006, end: 20171010
  19. LISINOPRIL. [Suspect]
     Active Substance: LISINOPRIL
     Indication: HYPERTENSION
     Route: 048
     Dates: end: 20171010
  20. BELOC ZOK [Suspect]
     Active Substance: METOPROLOL SUCCINATE
     Indication: ARRHYTHMIA
     Route: 048
     Dates: end: 20171010
  21. PROPAFENONE HCL [Concomitant]
     Active Substance: PROPAFENONE HYDROCHLORIDE
     Dates: end: 20171010

REACTIONS (2)
  - Orthostatic hypotension [Not Recovered/Not Resolved]
  - Cerebral haemorrhage [Fatal]

NARRATIVE: CASE EVENT DATE: 201709
